FAERS Safety Report 8093845-0 (Version None)
Quarter: 2012Q1

REPORT INFORMATION
  Report Type: 
  Country: None (occurrence: None)
  Receive Date: 20120129
  Receipt Date: 20110909
  Transmission Date: 20120608
  Serious: No
  Sender: FDA-Public Use
  Company Number: US-ABBOTT-11P-163-0854261-00

PATIENT
  Sex: Female

DRUGS (7)
  1. HUMIRA [Suspect]
     Route: 058
     Dates: start: 20110801
  2. AMBIEN [Concomitant]
     Indication: INSOMNIA
  3. CELEXA [Concomitant]
     Indication: DEPRESSION
  4. HUMIRA [Suspect]
     Route: 058
     Dates: start: 20090101, end: 20090101
  5. XANAX [Concomitant]
     Indication: ANXIETY
  6. HUMIRA [Suspect]
     Indication: CROHN'S DISEASE
     Route: 058
     Dates: start: 20090101, end: 20110801
  7. HUMIRA [Suspect]
     Route: 058

REACTIONS (5)
  - INTESTINAL FISTULA INFECTION [None]
  - CROHN'S DISEASE [None]
  - RECTAL HAEMORRHAGE [None]
  - OEDEMA PERIPHERAL [None]
  - PAIN IN EXTREMITY [None]
